FAERS Safety Report 10777223 (Version 1)
Quarter: 2015Q1

REPORT INFORMATION
  Report Type: Report from Study
  Country: PL (occurrence: PL)
  Receive Date: 20150209
  Receipt Date: 20150209
  Transmission Date: 20150721
  Serious: Yes (Death)
  Sender: FDA-Public Use
  Company Number: PHHO2014PL010151

PATIENT
  Age: 8 Year
  Sex: Female
  Weight: 24.5 kg

DRUGS (2)
  1. RAD001M [Suspect]
     Active Substance: EVEROLIMUS
     Indication: ASTROCYTOMA, LOW GRADE
     Dosage: 2 MG, BID
     Route: 048
     Dates: start: 20110606
  2. PLACEBO [Suspect]
     Active Substance: UNSPECIFIED INGREDIENT
     Indication: ASTROCYTOMA, LOW GRADE
     Route: 048

REACTIONS (1)
  - Asphyxia [Fatal]

NARRATIVE: CASE EVENT DATE: 20140722
